FAERS Safety Report 5101537-2 (Version None)
Quarter: 2006Q3

REPORT INFORMATION
  Report Type: 
  Country: None (occurrence: None)
  Receive Date: 20060911
  Receipt Date: 20060904
  Transmission Date: 20061208
  Serious: Yes (Death)
  Sender: FDA-Public Use
  Company Number: IL-NOVOPROD-256570

PATIENT
  Age: 66 Year
  Sex: Female

DRUGS (2)
  1. NOVOSEVEN [Suspect]
     Indication: HAEMORRHAGE
     Dosage: 1.2 + 4.8 MG
     Dates: start: 20060817, end: 20060817
  2. COUMADIN [Concomitant]
     Indication: DRUG USE FOR UNKNOWN INDICATION

REACTIONS (2)
  - DRUG INEFFECTIVE [None]
  - HAEMORRHAGE [None]
